FAERS Safety Report 9426374 (Version 1)
Quarter: 2013Q3

REPORT INFORMATION
  Report Type: Spontaneous
  Country: GB (occurrence: GB)
  Receive Date: 20130730
  Receipt Date: 20130730
  Transmission Date: 20140515
  Serious: Yes (Death, Hospitalization)
  Sender: FDA-Public Use
  Company Number: GB-SUN PHARMACEUTICAL INDUSTRIES LTD-2013SUN01080

PATIENT
  Age: 63 Year
  Sex: Female

DRUGS (2)
  1. CARBOPLATIN [Suspect]
     Indication: OVARIAN CANCER METASTATIC
     Dosage: 3 WEEKLY
     Route: 065
  2. PACLITAXEL [Suspect]
     Indication: OVARIAN CANCER METASTATIC
     Dosage: 75 MG/M2, WEEKLY
     Route: 065

REACTIONS (8)
  - Tumour lysis syndrome [Fatal]
  - Multi-organ failure [Fatal]
  - Renal failure acute [Fatal]
  - Pulmonary oedema [Fatal]
  - Respiratory failure [Fatal]
  - Ischaemic hepatitis [Fatal]
  - Hepatic vein thrombosis [Fatal]
  - Intestinal infarction [Fatal]
